FAERS Safety Report 6882280-6 (Version None)
Quarter: 2010Q3

REPORT INFORMATION
  Report Type: 
  Country: None (occurrence: None)
  Receive Date: 20100729
  Receipt Date: 20100722
  Transmission Date: 20110219
  Serious: Yes (Other)
  Sender: FDA-Public Use
  Company Number: GB-PERRIGO-10GB011513

PATIENT
  Age: 47 Year
  Sex: Male
  Weight: 78 kg

DRUGS (4)
  1. NAPROXEN SODIUM 12063/0054 250 MG [Suspect]
     Indication: ARTHRALGIA
     Dosage: 500 MG, UNK
     Route: 048
     Dates: start: 20100616, end: 20100630
  2. ACETAMINOPHEN AND CODEINE PHOSPHATE [Concomitant]
     Indication: ARTHRALGIA
     Dosage: UNK
     Route: 048
  3. DICLOFENAC [Concomitant]
     Indication: PRODUCT USED FOR UNKNOWN INDICATION
     Dosage: 50 MG, UNK
     Route: 048
     Dates: start: 20100201, end: 20100616
  4. SIMVASTATIN [Concomitant]
     Indication: PRODUCT USED FOR UNKNOWN INDICATION
     Dosage: 40 MG, UNK
     Route: 048
     Dates: start: 20100201

REACTIONS (2)
  - BLISTER [None]
  - SKIN MASS [None]
